FAERS Safety Report 21112607 (Version 5)
Quarter: 2023Q2

REPORT INFORMATION
  Report Type: Report from Study
  Country: US (occurrence: US)
  Receive Date: 20220721
  Receipt Date: 20230424
  Transmission Date: 20230722
  Serious: Yes (Hospitalization, Other)
  Sender: FDA-Public Use
  Company Number: US-BAXTER-2022BAX014752

PATIENT
  Age: 17 Year
  Sex: Male
  Weight: 71.4 kg

DRUGS (32)
  1. DOXORUBICIN [Suspect]
     Active Substance: DOXORUBICIN
     Indication: Acute lymphocytic leukaemia
     Dosage: 48 MG, ONCE DAYS 1, 8, 15 OF DI
     Route: 042
     Dates: start: 20220524
  2. DOXORUBICIN [Suspect]
     Active Substance: DOXORUBICIN
     Dosage: QD (LAST DOSES PRIOR TO THE SAES)
     Route: 042
     Dates: start: 20220607, end: 20220607
  3. CYCLOPHOSPHAMIDE [Suspect]
     Active Substance: CYCLOPHOSPHAMIDE
     Indication: Acute lymphocytic leukaemia
     Dosage: 1950 MG, QD (ONCE)
     Route: 042
     Dates: start: 20211214
  4. CYCLOPHOSPHAMIDE [Suspect]
     Active Substance: CYCLOPHOSPHAMIDE
     Dosage: QD (LAST DOSE PRIOR TO THE FEBRILE NEUTROPENIA (1ST OCCURRENCE))
     Route: 042
     Dates: start: 20220125, end: 20220125
  5. CYCLOPHOSPHAMIDE [Suspect]
     Active Substance: CYCLOPHOSPHAMIDE
     Dosage: QD (LAST DOSE PRIOR TO THE FEBRILE NEUTROPENIA (2ND OCCURRENCE))
     Route: 042
     Dates: start: 20220628, end: 20220628
  6. RUXOLITINIB [Suspect]
     Active Substance: RUXOLITINIB
     Indication: Acute lymphocytic leukaemia
     Dosage: 95 MG, BID (FOR 14 DAYS)
     Route: 048
     Dates: start: 20211214
  7. RUXOLITINIB [Suspect]
     Active Substance: RUXOLITINIB
     Dosage: UNK, BID
     Route: 048
     Dates: start: 20220606, end: 20220606
  8. CYTARABINE [Suspect]
     Active Substance: CYTARABINE
     Indication: Acute lymphocytic leukaemia
     Dosage: 145 MG, ONCE
     Route: 042
     Dates: start: 20211214
  9. CYTARABINE [Suspect]
     Active Substance: CYTARABINE
     Dosage: ONCE (LAST DOSE PRIOR TO THE SAE OF FEBRILE NEUTROPENIA (1ST OCCURRENCE))
     Route: 042
     Dates: start: 20220204, end: 20220204
  10. CYTARABINE [Suspect]
     Active Substance: CYTARABINE
     Dosage: ONCE (LAST DOSE OF CYTARABINE PRIOR TO THE SAES OF SAES FEBRILE NEUTROPENIA (2ND OCCURRENCE) PARAINF
     Route: 042
     Dates: start: 20220708, end: 20220708
  11. MERCAPTOPURINE [Suspect]
     Active Substance: MERCAPTOPURINE
     Indication: Acute lymphocytic leukaemia
     Dosage: 2.5 TABLETS (TABS) FIVE DAYS PER WEEK, 2 TABS TWO DAYS PER WEEK
     Route: 048
     Dates: start: 20211214
  12. MERCAPTOPURINE [Suspect]
     Active Substance: MERCAPTOPURINE
     Dosage: UNK
     Route: 048
     Dates: start: 20220510, end: 20220510
  13. METHOTREXATE [Suspect]
     Active Substance: METHOTREXATE
     Indication: Acute lymphocytic leukaemia
     Dosage: 15 MG, ONCE
     Route: 037
     Dates: start: 20211214
  14. METHOTREXATE [Suspect]
     Active Substance: METHOTREXATE
     Dosage: 9335 MG, ONCE
     Route: 042
     Dates: start: 20220301
  15. METHOTREXATE [Suspect]
     Active Substance: METHOTREXATE
     Dosage: LAST DOSE OF HIGH DOSE IV
     Route: 042
     Dates: start: 20220316, end: 20220316
  16. METHOTREXATE [Suspect]
     Active Substance: METHOTREXATE
     Dosage: LAST DOSE OF IT METHOTREXATE PRIOR TO THE SAE OF FEBRILE NEUTROPENIA (1ST OCCURRENCE)
     Route: 037
     Dates: start: 20220524, end: 20220524
  17. METHOTREXATE [Suspect]
     Active Substance: METHOTREXATE
     Dosage: LAST DOSE OF IT METHOTREXATE PRIOR TO THE SAES OF FEBRILE NEUTROPENIA (2ND OCCURRENCE) PARAINFLUENZA
     Route: 037
     Dates: start: 20220705
  18. VINCRISTINE [Suspect]
     Active Substance: VINCRISTINE
     Indication: Acute lymphocytic leukaemia
     Dosage: 22 MG, QD, ONCE
     Route: 042
     Dates: start: 20211214
  19. VINCRISTINE [Suspect]
     Active Substance: VINCRISTINE
     Dosage: UNK
     Route: 042
     Dates: start: 20220607, end: 20220607
  20. VINCRISTINE [Suspect]
     Active Substance: VINCRISTINE
     Dosage: LAST DOSE OF VINCRISTINE
     Route: 042
     Dates: start: 20220712
  21. PEGASPARGASE [Suspect]
     Active Substance: PEGASPARGASE
     Indication: Acute lymphocytic leukaemia
     Dosage: 3750 UNITS, ONCE
     Route: 042
     Dates: start: 20211215
  22. PEGASPARGASE [Suspect]
     Active Substance: PEGASPARGASE
     Dosage: UNK UNK, QD
     Route: 042
     Dates: start: 20220208, end: 20220208
  23. PEGASPARGASE [Suspect]
     Active Substance: PEGASPARGASE
     Dosage: UNK (PRIOR TO THE SAE OF FEBRILE NEUTROPENIA (1ST OCCURRENCE))
     Route: 042
     Dates: start: 20220712
  24. LEUCOVORIN [Suspect]
     Active Substance: LEUCOVORIN
     Indication: Acute lymphocytic leukaemia
     Dosage: 28 MG (Q6 FOR 3 DOSES AFTER HD MTX)
     Route: 042
     Dates: start: 20220301
  25. LEUCOVORIN [Suspect]
     Active Substance: LEUCOVORIN
     Dosage: UNK (LAST DOSE OF LEUCOVORIN PRIOR TO THE SAES)
     Route: 042
     Dates: start: 20220429, end: 20220429
  26. DEXAMETHASONE [Suspect]
     Active Substance: DEXAMETHASONE
     Indication: Acute lymphocytic leukaemia
     Dosage: 10 MG, BID
     Route: 048
     Dates: start: 20220524
  27. DEXAMETHASONE [Suspect]
     Active Substance: DEXAMETHASONE
     Dosage: UNK
     Route: 048
     Dates: start: 20220613, end: 20220613
  28. THIOGUANINE [Suspect]
     Active Substance: THIOGUANINE
     Indication: Acute lymphocytic leukaemia
     Dosage: 40MG, 3 TABLETS QD FOR 5 DAYS AND 2.5 TABLETS QD FOR 2 DAYS PER WEEK ON DAYS 29-42
     Route: 048
     Dates: start: 20220628
  29. THIOGUANINE [Suspect]
     Active Substance: THIOGUANINE
     Dosage: UNK (LAST DOSE PRIOR TO THE SAES FEBRILE NEUTROPENIA (2ND OCCURRENCE) PARAINFLUENZA 3 AND FUNGAL INF
     Route: 048
     Dates: start: 20220711
  30. ISAVUCONAZONIUM SULFATE [Concomitant]
     Active Substance: ISAVUCONAZONIUM SULFATE
     Indication: Prophylaxis
     Dosage: UNK
     Route: 065
     Dates: start: 20220305
  31. BACTRIM [Concomitant]
     Active Substance: SULFAMETHOXAZOLE\TRIMETHOPRIM
     Indication: Prophylaxis
     Dosage: UNK
     Route: 065
     Dates: start: 20211105
  32. ISAVUCONAZOLE [Concomitant]
     Active Substance: ISAVUCONAZOLE
     Indication: Fungal infection
     Dosage: UNK
     Route: 065
     Dates: start: 202202

REACTIONS (4)
  - Febrile neutropenia [Recovered/Resolved]
  - Febrile neutropenia [Recovered/Resolved]
  - Parainfluenzae virus infection [Recovered/Resolved]
  - Pneumonia fungal [Recovered/Resolved]

NARRATIVE: CASE EVENT DATE: 20220617
